FAERS Safety Report 12511213 (Version 1)
Quarter: 2016Q2

REPORT INFORMATION
  Report Type: Report from Study
  Country: DO (occurrence: DO)
  Receive Date: 20160629
  Receipt Date: 20160629
  Transmission Date: 20160815
  Serious: Yes (Other)
  Sender: FDA-Public Use
  Company Number: PHHY2016DO079149

PATIENT
  Age: 61 Year
  Sex: Female
  Weight: 178 kg

DRUGS (2)
  1. CO-DIOVAN [Suspect]
     Active Substance: HYDROCHLOROTHIAZIDE\VALSARTAN
     Indication: HYPERTENSION
     Dosage: (HYDROCHLOROTHIAZIDE 12.5 MG, VALSARTAN 160 MG)
     Route: 065
  2. EUTIROX [Concomitant]
     Active Substance: LEVOTHYROXINE SODIUM
     Indication: HYPOTHYROIDISM
     Dosage: 100 UG, QD
     Route: 048

REACTIONS (4)
  - Hypoacusis [Unknown]
  - Headache [Unknown]
  - Abscess jaw [Recovering/Resolving]
  - Pain [Recovered/Resolved]
